FAERS Safety Report 21783601 (Version 1)
Quarter: 2022Q4

REPORT INFORMATION
  Report Type: Spontaneous
  Country: US (occurrence: None)
  Receive Date: 20221223
  Receipt Date: 20221223
  Transmission Date: 20230113
  Serious: Yes (Life-Threatening, Other)
  Sender: FDA-Public Use
  Company Number: None

PATIENT
  Age: 54 Year
  Sex: Female
  Weight: 55.8 kg

DRUGS (2)
  1. COLD AND FLU RELIEF MULTI SYMPTOM NIGHTTIME [Suspect]
     Active Substance: ACETAMINOPHEN\DEXTROMETHORPHAN HYDROBROMIDE\DOXYLAMINE SUCCINATE
     Indication: Cough
     Dosage: OTHER QUANTITY : 1 1;?FREQUENCY : EVERY 4 HOURS;?
     Route: 048
     Dates: start: 20221207, end: 20221207
  2. EQUATE ADULT COUGH AND CHEST CONGESTION DM [Suspect]
     Active Substance: DEXTROMETHORPHAN HYDROBROMIDE\GUAIFENESIN

REACTIONS (4)
  - Throat irritation [None]
  - Oral discomfort [None]
  - Vomiting [None]
  - Choking [None]

NARRATIVE: CASE EVENT DATE: 20221207
